FAERS Safety Report 25976677 (Version 1)
Quarter: 2025Q4

REPORT INFORMATION
  Report Type: Spontaneous
  Country: JP (occurrence: JP)
  Receive Date: 20251029
  Receipt Date: 20251029
  Transmission Date: 20260117
  Serious: Yes (Other)
  Sender: CLINIGEN
  Company Number: JP-CLINIGEN-CLI2025000160

PATIENT

DRUGS (2)
  1. FOSCARNET SODIUM [Suspect]
     Active Substance: FOSCARNET SODIUM
     Indication: Cytomegalovirus chorioretinitis
     Dosage: UNK
     Route: 065
  2. GANCICLOVIR [Suspect]
     Active Substance: GANCICLOVIR
     Indication: Product used for unknown indication
     Route: 065

REACTIONS (5)
  - Renal impairment [Unknown]
  - Neutropenia [Unknown]
  - Blindness [Unknown]
  - Macular oedema [Recovered/Resolved]
  - Cytomegalovirus chorioretinitis [Unknown]
